FAERS Safety Report 7308500-1 (Version None)
Quarter: 2011Q1

REPORT INFORMATION
  Report Type: 
  Country: None (occurrence: None)
  Receive Date: 20110223
  Receipt Date: 20101215
  Transmission Date: 20110831
  Serious: Yes (Other)
  Sender: FDA-Public Use
  Company Number: US-BAYER-2011-000581

PATIENT
  Sex: Female

DRUGS (4)
  1. CLIMARA [Suspect]
     Dosage: 0.025 MG, UNK
     Dates: start: 20080101
  2. CLIMARA [Suspect]
     Dosage: 0.05 MG, UNK
     Dates: start: 19990101, end: 20060101
  3. CLIMARA [Suspect]
     Dosage: 0.05 MG, UNK
     Dates: start: 20080101
  4. CLIMARA [Suspect]
     Dosage: 0.375 MG, UNK
     Dates: start: 20101201

REACTIONS (6)
  - NERVOUSNESS [None]
  - GASTRIC ULCER [None]
  - DISTURBANCE IN ATTENTION [None]
  - MENTAL STATUS CHANGES [None]
  - FEELING ABNORMAL [None]
  - HELICOBACTER INFECTION [None]
